FAERS Safety Report 6302751-0 (Version None)
Quarter: 2009Q3

REPORT INFORMATION
  Report Type: 
  Country: None (occurrence: None)
  Receive Date: 20090810
  Receipt Date: 20090804
  Transmission Date: 20100115
  Serious: Yes (Hospitalization)
  Sender: FDA-Public Use
  Company Number: PHHY2009JP31719

PATIENT
  Age: 58 Year
  Sex: Male

DRUGS (3)
  1. CERTICAN [Suspect]
     Indication: HEART TRANSPLANT
     Dosage: UNK
     Route: 048
  2. TACROLIMUS [Suspect]
     Indication: HEART TRANSPLANT
     Route: 048
  3. PREDNISOLONE [Suspect]
     Indication: HEART TRANSPLANT
     Dosage: UNK
     Route: 048

REACTIONS (8)
  - ABDOMINAL PAIN [None]
  - INTESTINAL RESECTION [None]
  - LARGE INTESTINE ANASTOMOSIS [None]
  - LARGE INTESTINE CARCINOMA [None]
  - LARGE INTESTINE PERFORATION [None]
  - METASTASES TO LIVER [None]
  - METASTASES TO LYMPH NODES [None]
  - PERITONITIS [None]
